FAERS Safety Report 4677959-0 (Version None)
Quarter: 2005Q2

REPORT INFORMATION
  Report Type: 
  Country: None (occurrence: None)
  Receive Date: 20050531
  Receipt Date: 20050516
  Transmission Date: 20051028
  Serious: Yes (Hospitalization, Disabling)
  Sender: FDA-Public Use
  Company Number: US-JNJFOC-20050507184

PATIENT
  Sex: Male

DRUGS (35)
  1. IBUPROFEN [Suspect]
     Indication: PAIN
     Route: 049
  2. LITHIUM [Interacting]
     Indication: BIPOLAR DISORDER
     Route: 049
  3. BEXTRA [Interacting]
     Indication: ARTHRITIS
     Route: 049
  4. PHAZYME [Suspect]
     Route: 049
  5. PHAZYME [Suspect]
     Route: 049
  6. PHAZYME [Suspect]
     Route: 049
  7. PHAZYME [Suspect]
     Route: 049
  8. VIOXX [Suspect]
     Indication: ILL-DEFINED DISORDER
     Route: 049
  9. MULTI-VITAMINS [Concomitant]
  10. MULTI-VITAMINS [Concomitant]
  11. MULTI-VITAMINS [Concomitant]
  12. MULTI-VITAMINS [Concomitant]
  13. MULTI-VITAMINS [Concomitant]
  14. MULTI-VITAMINS [Concomitant]
  15. MULTI-VITAMINS [Concomitant]
  16. MULTI-VITAMINS [Concomitant]
  17. ASCORBIC ACID [Concomitant]
  18. ACIDOPHILUS [Concomitant]
  19. GARLIC [Concomitant]
  20. VITAMIN E [Concomitant]
  21. NEURONTIN [Concomitant]
  22. CELEBREX [Concomitant]
  23. PRILOSEC [Concomitant]
  24. CLARITIN [Concomitant]
  25. IMITREX [Concomitant]
  26. BUSPAR [Concomitant]
  27. SLEEPING TABLETS [Concomitant]
  28. COLACE [Concomitant]
  29. EFFEXOR [Concomitant]
  30. PULMICORT [Concomitant]
  31. ALBUTEROL [Concomitant]
  32. SEREVENT [Concomitant]
  33. ATROVENT [Concomitant]
  34. ASPIRIN [Concomitant]
  35. SINGULAIR [Concomitant]

REACTIONS (13)
  - ACTIVITIES OF DAILY LIVING IMPAIRED [None]
  - AMNESIA [None]
  - CEREBROVASCULAR ACCIDENT [None]
  - COMA [None]
  - DIALYSIS [None]
  - DIFFICULTY IN WALKING [None]
  - DRUG INTERACTION [None]
  - HALLUCINATION [None]
  - HEMIPLEGIA [None]
  - INFLUENZA [None]
  - MALAISE [None]
  - RENAL FAILURE [None]
  - SPEECH DISORDER [None]
